FAERS Safety Report 18899524 (Version 3)
Quarter: 2022Q1

REPORT INFORMATION
  Report Type: Spontaneous
  Country: US (occurrence: US)
  Receive Date: 20210216
  Receipt Date: 20220331
  Transmission Date: 20220423
  Serious: No
  Sender: FDA-Public Use
  Company Number: US-PFIZER INC-2020316981

PATIENT
  Age: 37 Year
  Sex: Male

DRUGS (2)
  1. SOMATROPIN [Suspect]
     Active Substance: SOMATROPIN
     Indication: Hypothalamo-pituitary disorder
     Dosage: 1.8 MG, DAILY
  2. SOMATROPIN [Suspect]
     Active Substance: SOMATROPIN
     Indication: Hypopituitarism
     Dosage: 0.8 MG (AT NIGHT)

REACTIONS (6)
  - Therapeutic product effect incomplete [Unknown]
  - Drug ineffective [Unknown]
  - Insomnia [Unknown]
  - Feeling abnormal [Unknown]
  - Illness [Unknown]
  - Blood testosterone decreased [Unknown]
